FAERS Safety Report 7807274-5 (Version None)
Quarter: 2011Q4

REPORT INFORMATION
  Report Type: 
  Country: None (occurrence: None)
  Receive Date: 20111011
  Receipt Date: 20111006
  Transmission Date: 20120403
  Serious: Yes (Other)
  Sender: FDA-Public Use
  Company Number: SE-PFIZER INC-2011239453

PATIENT
  Sex: Female

DRUGS (3)
  1. PREDNISOLONE [Suspect]
     Indication: BONE DISORDER
     Dosage: 40 MG, UNK
     Route: 048
  2. PREDNISOLONE [Suspect]
     Dosage: 10 MG, 1X/DAY
     Route: 048
  3. METHOTREXATE [Concomitant]

REACTIONS (4)
  - RHINORRHOEA [None]
  - LISTLESS [None]
  - OROPHARYNGEAL BLISTERING [None]
  - GENERAL PHYSICAL HEALTH DETERIORATION [None]
